FAERS Safety Report 5602650-3 (Version None)
Quarter: 2008Q1

REPORT INFORMATION
  Report Type: 
  Country: None (occurrence: None)
  Receive Date: 20080125
  Receipt Date: 20080107
  Transmission Date: 20080703
  Serious: Yes (Other)
  Sender: FDA-Public Use
  Company Number: US-BAUSCH-2008BL000058

PATIENT
  Age: 51 Year
  Sex: Male

DRUGS (1)
  1. COLLYRIUM EYE WASH [Suspect]
     Indication: OFF LABEL USE
     Route: 047
     Dates: start: 20080106, end: 20080106

REACTIONS (3)
  - CHEMICAL BURNS OF EYE [None]
  - INTRAOCULAR PRESSURE INCREASED [None]
  - MEDICATION ERROR [None]
